FAERS Safety Report 21556262 (Version 1)
Quarter: 2022Q4

REPORT INFORMATION
  Report Type: Spontaneous
  Country: CN (occurrence: CN)
  Receive Date: 20221104
  Receipt Date: 20221104
  Transmission Date: 20230113
  Serious: Yes (Hospitalization, Other)
  Sender: FDA-Public Use
  Company Number: None

PATIENT
  Age: 7 Year
  Sex: Female
  Weight: 32 kg

DRUGS (5)
  1. CYCLOPHOSPHAMIDE [Suspect]
     Active Substance: CYCLOPHOSPHAMIDE
     Indication: Acute myeloid leukaemia
     Dosage: 800 MG, QD
     Route: 041
     Dates: start: 20220926, end: 20220926
  2. PEGASPARGASE [Suspect]
     Active Substance: PEGASPARGASE
     Indication: Acute myeloid leukaemia
     Dosage: 2725 IU, QD
     Route: 030
     Dates: start: 20220927, end: 20220927
  3. METHOTREXATE [Suspect]
     Active Substance: METHOTREXATE
     Indication: Acute myeloid leukaemia
     Dosage: 12 MG, QD
     Route: 037
     Dates: start: 20220928, end: 20220928
  4. CYTARABINE [Suspect]
     Active Substance: CYTARABINE
     Indication: Acute myeloid leukaemia
     Dosage: 80 MG, QD
     Route: 041
     Dates: start: 20220928, end: 20221001
  5. CYTARABINE [Suspect]
     Active Substance: CYTARABINE
     Dosage: 36 MG, QD
     Route: 037
     Dates: start: 20220928, end: 20220928

REACTIONS (4)
  - Total bile acids increased [Not Recovered/Not Resolved]
  - Iron overload [Not Recovered/Not Resolved]
  - Myelosuppression [Not Recovered/Not Resolved]
  - Liver injury [Not Recovered/Not Resolved]

NARRATIVE: CASE EVENT DATE: 20221006
